FAERS Safety Report 12074019 (Version 2)
Quarter: 2016Q1

REPORT INFORMATION
  Report Type: Report from Study
  Country: TW (occurrence: TW)
  Receive Date: 20160212
  Receipt Date: 20160224
  Transmission Date: 20160526
  Serious: Yes (Hospitalization)
  Sender: FDA-Public Use
  Company Number: PHHY2016TW001112

PATIENT
  Age: 94 Year
  Sex: Male
  Weight: 60.6 kg

DRUGS (40)
  1. METHYLPHENIDATE HYDROCHLORIDE. [Concomitant]
     Active Substance: METHYLPHENIDATE HYDROCHLORIDE
     Indication: BONE PAIN
     Dosage: UNK
     Route: 065
     Dates: start: 20160202
  2. NATRILIX [Concomitant]
     Active Substance: INDAPAMIDE
     Indication: ANGINA PECTORIS
     Route: 065
  3. LUNGTEC [Concomitant]
     Indication: PRODUCT USED FOR UNKNOWN INDICATION
     Dosage: 1 DF (AT BED TIME)
     Route: 048
     Dates: start: 20160111
  4. SPIRIVA [Concomitant]
     Active Substance: TIOTROPIUM BROMIDE MONOHYDRATE
     Indication: PRODUCT USED FOR UNKNOWN INDICATION
     Route: 065
  5. PLAQUENIL [Concomitant]
     Active Substance: HYDROXYCHLOROQUINE SULFATE
     Indication: RHEUMATOID ARTHRITIS
     Dosage: 1 DF, BID
     Route: 048
     Dates: start: 20160111, end: 20160128
  6. CELEBREX [Concomitant]
     Active Substance: CELECOXIB
     Indication: BONE PAIN
     Dosage: 1 DF, QD
     Route: 048
     Dates: start: 20160110, end: 20160128
  7. ACTEIN [Concomitant]
     Indication: PRODUCTIVE COUGH
     Dosage: 1 DF, BID
     Route: 048
     Dates: start: 20160119, end: 20160128
  8. ULTRACET [Concomitant]
     Active Substance: ACETAMINOPHEN\TRAMADOL HYDROCHLORIDE
     Indication: GASTRITIS
     Dosage: 1 DF, Q8H
     Route: 048
     Dates: start: 20160119, end: 20160128
  9. RITALIN [Concomitant]
     Active Substance: METHYLPHENIDATE HYDROCHLORIDE
     Indication: BONE PAIN
     Dosage: 1 DF, UNK
     Route: 065
     Dates: start: 20160202
  10. PLETAAL [Concomitant]
     Active Substance: CILOSTAZOL
     Indication: ANGINA PECTORIS
     Dosage: UNK
     Route: 065
  11. TAKEPRON [Concomitant]
     Active Substance: LANSOPRAZOLE
     Indication: GASTRITIS
     Dosage: 1 DF, QD
     Route: 065
     Dates: start: 20160103, end: 20160128
  12. GASCON [Concomitant]
     Active Substance: DIMETHICONE
     Indication: ABDOMINAL DISTENSION
     Dosage: 1 DF, QID
     Route: 048
     Dates: start: 20160113, end: 20160128
  13. LACTULOSE. [Concomitant]
     Active Substance: LACTULOSE
     Indication: DIARRHOEA
     Dosage: 600 MG PER 1 ML, 500 ML PER BOTTLE 20 ML, TID
     Route: 048
     Dates: start: 20160119, end: 20160128
  14. URIEF [Concomitant]
     Active Substance: SILODOSIN
     Indication: ANGINA PECTORIS
     Dosage: 1 DF, BID
     Route: 048
     Dates: start: 20160113, end: 20160128
  15. REFRESH [Concomitant]
     Active Substance: UNSPECIFIED INGREDIENT
     Indication: DRY EYE
     Dosage: 1 DF, BID (EACH EYE OR BOTH EYES)
     Route: 065
     Dates: start: 20160103, end: 20160128
  16. CB [Concomitant]
     Indication: WOUND
     Dosage: 5 G PER TUBE, PRN
     Route: 065
     Dates: start: 20160106, end: 20160128
  17. SEROQUEL [Concomitant]
     Active Substance: QUETIAPINE FUMARATE
     Indication: INSOMNIA
     Dosage: 1 DF, HS
     Route: 048
     Dates: start: 20150215
  18. PLAVIX [Concomitant]
     Active Substance: CLOPIDOGREL BISULFATE
     Indication: PRODUCT USED FOR UNKNOWN INDICATION
     Route: 065
  19. URIEF [Concomitant]
     Active Substance: SILODOSIN
     Indication: BENIGN PROSTATIC HYPERPLASIA
     Dosage: 4 MG, ONE CAPSULE, BID
     Route: 048
     Dates: start: 20160217
  20. NINCORT [Concomitant]
     Indication: MOUTH ULCERATION
     Dosage: 6 G PER TUBE, BID
     Route: 048
     Dates: start: 20160104
  21. FUCIDIN [Concomitant]
     Active Substance: FUSIDIC ACID
     Indication: WOUND
     Dosage: 5 G PER TUBE, BID
     Route: 065
     Dates: start: 20160106, end: 20160128
  22. MOBIC [Concomitant]
     Active Substance: MELOXICAM
     Indication: BONE PAIN
     Dosage: 1 DF, UNK
     Route: 065
     Dates: start: 20160204
  23. CEFTRIAXONE. [Concomitant]
     Active Substance: CEFTRIAXONE
     Indication: PRODUCT USED FOR UNKNOWN INDICATION
     Dosage: UNK
     Route: 065
     Dates: start: 20160102, end: 20160111
  24. NITROSTAT [Concomitant]
     Active Substance: NITROGLYCERIN
     Indication: ANGINA PECTORIS
     Route: 060
  25. FOLIC ACID. [Concomitant]
     Active Substance: FOLIC ACID
     Indication: ANAEMIA
     Dosage: 1 DF, QD
     Route: 048
     Dates: start: 20160116, end: 20160128
  26. ZOLEDRONATE [Suspect]
     Active Substance: ZOLEDRONIC ACID
     Indication: PLASMA CELL MYELOMA
     Dosage: 4 MG, UNK
     Route: 042
     Dates: start: 20140310, end: 20160215
  27. MGO [Concomitant]
     Indication: CONSTIPATION
     Dosage: 1 DF, TID
     Route: 048
     Dates: start: 20160104
  28. SENNAPUR [Concomitant]
     Indication: CONSTIPATION
     Dosage: 2 DF, (AT BEDTIME) UNK
     Route: 048
     Dates: start: 20160104
  29. SEROQUEL [Concomitant]
     Active Substance: QUETIAPINE FUMARATE
     Indication: ANXIETY
     Dosage: 0.5 DF (AT BED TIME)
     Route: 048
     Dates: start: 20160114
  30. ACTEIN [Concomitant]
     Dosage: 1 DF, BID
     Route: 048
     Dates: start: 20160212
  31. TETRACYCLINE [Concomitant]
     Active Substance: TETRACYCLINE
     Indication: CONJUNCTIVITIS
     Dosage: 10 MG PER 1 G 1 PERCENT 5 G TUBE 1 (BOTH EYES)
     Route: 065
     Dates: start: 20160119, end: 20160128
  32. LIDOPAT [Concomitant]
     Indication: BONE PAIN
     Dosage: 700 MG PER PCE
     Route: 065
     Dates: start: 20160127
  33. CELECOXIB. [Concomitant]
     Active Substance: CELECOXIB
     Indication: PRODUCT USED FOR UNKNOWN INDICATION
     Route: 065
  34. ROCEPHIN [Concomitant]
     Active Substance: CEFTRIAXONE SODIUM
     Indication: PROPHYLAXIS
     Dosage: UNK
     Route: 065
     Dates: start: 20160102, end: 20160111
  35. DIOVAN [Concomitant]
     Active Substance: VALSARTAN
     Indication: ANGINA PECTORIS
     Dosage: 1 DF, QD
     Route: 048
     Dates: start: 20160111, end: 20160128
  36. DIOVAN [Concomitant]
     Active Substance: VALSARTAN
     Indication: HYPERTENSION
  37. CELEBREX [Concomitant]
     Active Substance: CELECOXIB
     Dosage: 200 MG, 1 CAPSULE, QDPRN
     Route: 048
     Dates: start: 20160217
  38. BISACODYL. [Concomitant]
     Active Substance: BISACODYL
     Indication: DIARRHOEA
     Dosage: 1 DF, QD (PRN)
     Route: 065
     Dates: start: 20160104
  39. BISACODYL. [Concomitant]
     Active Substance: BISACODYL
     Dosage: 1 DF, QD PRN
     Route: 048
     Dates: start: 20160217
  40. CLOPIDOGREL [Concomitant]
     Active Substance: CLOPIDOGREL BISULFATE
     Indication: PERCUTANEOUS CORONARY INTERVENTION
     Dosage: 75 PLAVIX, 75 MG PER TABLET
     Route: 065
     Dates: start: 20160123

REACTIONS (34)
  - Tonic convulsion [Recovered/Resolved]
  - Urinary retention [Unknown]
  - Abasia [Recovered/Resolved]
  - Neurologic neglect syndrome [Recovered/Resolved]
  - Loss of consciousness [Recovered/Resolved]
  - Pneumonia [Recovered/Resolved]
  - Cough [Recovered/Resolved with Sequelae]
  - Osteoarthritis [Unknown]
  - Drug-induced liver injury [Recovered/Resolved]
  - Hemiplegia [Not Recovered/Not Resolved]
  - Latent syphilis [Recovered/Resolved]
  - Spinal osteoarthritis [Unknown]
  - Spondylolisthesis [Unknown]
  - Hyporeflexia [Unknown]
  - Ischaemic stroke [Recovered/Resolved with Sequelae]
  - Gaze palsy [Recovered/Resolved]
  - Facial paralysis [Recovered/Resolved]
  - Haematuria [Recovered/Resolved]
  - Hepatic enzyme increased [Unknown]
  - Somnolence [Recovered/Resolved with Sequelae]
  - Dysarthria [Recovered/Resolved]
  - Abdominal distension [Recovered/Resolved]
  - Hypotension [Recovered/Resolved with Sequelae]
  - Hemiparesis [Recovered/Resolved]
  - Blood pressure diastolic decreased [Unknown]
  - Pyrexia [Recovered/Resolved]
  - Back pain [Recovering/Resolving]
  - Scoliosis [Unknown]
  - Hypoaesthesia [Recovered/Resolved]
  - Pain in extremity [Recovered/Resolved with Sequelae]
  - Dysphagia [Unknown]
  - Hemianopia [Recovered/Resolved]
  - Haematuria traumatic [Recovered/Resolved]
  - Poor quality sleep [Recovered/Resolved with Sequelae]

NARRATIVE: CASE EVENT DATE: 20150217
